FAERS Safety Report 21625750 (Version 2)
Quarter: 2024Q2

REPORT INFORMATION
  Report Type: Report from Study
  Country: US (occurrence: US)
  Receive Date: 20221122
  Receipt Date: 20240401
  Transmission Date: 20240715
  Serious: No
  Sender: FDA-Public Use
  Company Number: US-ABBVIE-22K-163-4524059-00

PATIENT
  Sex: Female

DRUGS (3)
  1. RINVOQ [Suspect]
     Active Substance: UPADACITINIB
     Indication: Psoriatic arthropathy
     Route: 048
  2. PFIZER-BIONTECH COVID-19 VACCINE [Suspect]
     Active Substance: TOZINAMERAN
     Indication: COVID-19 immunisation
     Dosage: 1ST DOSE 1IN 1 ONCE
     Route: 030
     Dates: start: 20210816, end: 20210816
  3. PFIZER-BIONTECH COVID-19 VACCINE [Suspect]
     Active Substance: TOZINAMERAN
     Indication: COVID-19 immunisation
     Dosage: 2ND DOSE 1 IN 1 ONCE
     Route: 030
     Dates: start: 20210920, end: 20210920

REACTIONS (5)
  - Pain [Not Recovered/Not Resolved]
  - Immunisation reaction [Unknown]
  - Dyspnoea [Unknown]
  - Finger deformity [Unknown]
  - Peripheral swelling [Unknown]
